FAERS Safety Report 13123743 (Version 1)
Quarter: 2017Q1

REPORT INFORMATION
  Report Type: Spontaneous
  Country: JP (occurrence: JP)
  Receive Date: 20170117
  Receipt Date: 20170117
  Transmission Date: 20170428
  Serious: Yes (Life-Threatening, Other)
  Sender: FDA-Public Use
  Company Number: JP-ROCHE-1868811

PATIENT
  Age: 78 Year
  Sex: Female
  Weight: 39 kg

DRUGS (2)
  1. MAGNESIUM OXIDE. [Concomitant]
     Active Substance: MAGNESIUM OXIDE
     Dosage: ONCE DOSAGE: 330 (UNIT UNCERTAINTY)
     Route: 048
  2. XELODA [Suspect]
     Active Substance: CAPECITABINE
     Indication: COLON CANCER
     Dosage: 2 WEEKS ADMINISTRATION FOLLOWED BY 1 WEEK REST
     Route: 048
     Dates: start: 20161027, end: 20161109

REACTIONS (8)
  - Febrile neutropenia [Recovered/Resolved]
  - Stoma site ulcer [Unknown]
  - Mouth ulceration [Recovered/Resolved]
  - Stomatitis [Recovered/Resolved]
  - Haemoglobin decreased [Recovered/Resolved]
  - Trismus [Unknown]
  - Platelet count decreased [Recovered/Resolved]
  - Pharyngeal oedema [Unknown]

NARRATIVE: CASE EVENT DATE: 20161107
